FAERS Safety Report 6669824-4 (Version None)
Quarter: 2010Q2

REPORT INFORMATION
  Report Type: 
  Country: None (occurrence: None)
  Receive Date: 20100406
  Receipt Date: 20100111
  Transmission Date: 20101027
  Serious: No
  Sender: FDA-Public Use
  Company Number: US-ALLERGAN-0902784US

PATIENT
  Age: 47 Year
  Sex: Female

DRUGS (1)
  1. LATISSE [Suspect]
     Indication: HYPOTRICHOSIS
     Dosage: UNK, BID
     Route: 061
     Dates: start: 20090225, end: 20090301

REACTIONS (6)
  - BLEPHAROPACHYNSIS [None]
  - EYELID EXFOLIATION [None]
  - EYELID OEDEMA [None]
  - EYELIDS PRURITUS [None]
  - INAPPROPRIATE SCHEDULE OF DRUG ADMINISTRATION [None]
  - MADAROSIS [None]
